FAERS Safety Report 12211832 (Version 1)
Quarter: 2016Q1

REPORT INFORMATION
  Report Type: Spontaneous
  Country: US (occurrence: US)
  Receive Date: 20160325
  Receipt Date: 20160325
  Transmission Date: 20160526
  Serious: Yes (Life-Threatening, Hospitalization, Other)
  Sender: FDA-Public Use
  Company Number: US-MDT-ADR-2016-00532

PATIENT
  Age: 27 Year
  Sex: Female

DRUGS (3)
  1. BACLOFEN. [Suspect]
     Active Substance: BACLOFEN
     Indication: MUSCLE SPASTICITY
     Route: 037
  2. BACLOFEN. [Suspect]
     Active Substance: BACLOFEN
     Route: 048
  3. MORPHINE [Suspect]
     Active Substance: MORPHINE
     Route: 037

REACTIONS (5)
  - Muscle spasms [Recovered/Resolved]
  - Muscle rigidity [Recovered/Resolved]
  - Pain [Recovered/Resolved]
  - Therapeutic response decreased [Recovered/Resolved]
  - Muscle spasticity [Recovered/Resolved]

NARRATIVE: CASE EVENT DATE: 2012
